FAERS Safety Report 5923796-6 (Version None)
Quarter: 2008Q4

REPORT INFORMATION
  Report Type: 
  Country: None (occurrence: None)
  Receive Date: 20081020
  Receipt Date: 20081009
  Transmission Date: 20090506
  Serious: Yes (Hospitalization, Other)
  Sender: FDA-Public Use
  Company Number: JP-JNJFOC-20080906414

PATIENT
  Sex: Female
  Weight: 64 kg

DRUGS (17)
  1. TRAMADOL HCL [Suspect]
     Indication: PAIN
     Dosage: 3-8 DOSES  2-6 DOSE FREQUENCY
     Route: 048
     Dates: start: 20080715, end: 20080925
  2. AZULFIDINE [Concomitant]
     Indication: RHEUMATOID ARTHRITIS
     Route: 048
  3. PREDNISOLONE [Concomitant]
     Indication: RHEUMATOID ARTHRITIS
     Route: 048
  4. CELECOXIB [Concomitant]
     Indication: RHEUMATOID ARTHRITIS
     Route: 048
  5. SELBEX [Concomitant]
     Indication: PROPHYLAXIS
     Route: 048
  6. ALENDRONATE SODIUM [Concomitant]
     Indication: OSTEOPOROSIS
     Route: 048
  7. SINLESTAL [Concomitant]
     Indication: HYPERLIPIDAEMIA
     Route: 048
  8. MAGNESIUM OXIDE [Concomitant]
     Indication: CONSTIPATION
     Route: 048
  9. PURSENNID [Concomitant]
     Indication: CONSTIPATION
     Route: 048
  10. LIPITOR [Concomitant]
     Indication: HYPERLIPIDAEMIA
     Route: 048
  11. LOXONIN [Concomitant]
     Route: 048
  12. XYLOCAINE [Concomitant]
     Indication: RHINITIS ALLERGIC
     Route: 065
  13. ZADITEN [Concomitant]
     Indication: RHINITIS ALLERGIC
     Route: 065
  14. BOSMIN [Concomitant]
     Indication: RHINITIS ALLERGIC
     Route: 065
  15. DECADRON [Concomitant]
     Indication: RHINITIS ALLERGIC
     Route: 065
  16. DISTILLED WATER [Concomitant]
     Indication: RHINITIS ALLERGIC
     Route: 065
  17. RABEPRAZOLE SODIUM [Concomitant]
     Indication: GASTROINTESTINAL DISORDER
     Route: 048

REACTIONS (4)
  - DIZZINESS [None]
  - NAUSEA [None]
  - PYELONEPHRITIS [None]
  - VOMITING [None]
